FAERS Safety Report 9390508 (Version 1)
Quarter: 2013Q3

REPORT INFORMATION
  Report Type: Spontaneous
  Country: IT (occurrence: IT)
  Receive Date: 20130709
  Receipt Date: 20130709
  Transmission Date: 20140515
  Serious: Yes (Hospitalization)
  Sender: FDA-Public Use
  Company Number: IT-ACCORD-018406

PATIENT
  Age: 64 Year
  Sex: Male

DRUGS (12)
  1. DEPONIT [Concomitant]
     Dosage: ^5 MG 24 H^ 15 PATCHES
  2. ANSIOLIN [Concomitant]
     Dosage: ^0, 5% SOLUTION^ 1 BOTTLE OF 30 ML^
  3. ANTRA [Concomitant]
     Dosage: ^20 MG^ 14 CAPSULES
  4. TACHIDOL [Concomitant]
     Dosage: ^ADULTS 500 MG/30 MG ^ 10 SACHETS
  5. SPIRIVA [Concomitant]
     Dosage: SPIRIVA RESPIMAT
  6. FLIXOTIDE [Concomitant]
     Dosage: ^500 MCG/2 ML^ 10 SINGLE DOSE?NEBULES CASE
  7. DILZENE [Concomitant]
     Dosage: STRENGTH: 60 MG, 50 TABLETS
  8. GEMCITABINE [Suspect]
     Indication: LUNG NEOPLASM MALIGNANT
     Route: 042
     Dates: start: 20121101, end: 20130227
  9. CARBOPLATIN [Suspect]
     Indication: LUNG NEOPLASM MALIGNANT
     Route: 042
     Dates: start: 20121101, end: 20130227
  10. TAREG [Concomitant]
     Dosage: ^80 MG^ 28 TABLETS IN BLISTER CALENDAR?PVC/PE/PVDC/AL
  11. PARACODINA [Concomitant]
     Dosage: ^10,25 MG/ML SOLUTION^ AMPOULE 15 G
  12. IBUSTRIN [Concomitant]
     Dosage: STRENGTH: 200 MG, 30 TABLETS

REACTIONS (4)
  - Anaemia [Not Recovered/Not Resolved]
  - Epistaxis [Not Recovered/Not Resolved]
  - Thrombocytopenia [Not Recovered/Not Resolved]
  - Off label use [Unknown]
